FAERS Safety Report 7479484-0 (Version None)
Quarter: 2011Q2

REPORT INFORMATION
  Report Type: 
  Country: None (occurrence: None)
  Receive Date: 20110513
  Receipt Date: 20110510
  Transmission Date: 20111010
  Serious: Yes (Hospitalization)
  Sender: FDA-Public Use
  Company Number: US-GILEAD-2011-0035853

PATIENT
  Sex: Female

DRUGS (1)
  1. LETAIRIS [Suspect]
     Indication: PULMONARY HYPERTENSION
     Route: 048
     Dates: start: 20110122, end: 20110311

REACTIONS (10)
  - PALPITATIONS [None]
  - DRY THROAT [None]
  - FLUID RETENTION [None]
  - OROPHARYNGEAL PAIN [None]
  - SINUSITIS [None]
  - NAUSEA [None]
  - NASAL CONGESTION [None]
  - SINUS CONGESTION [None]
  - ABDOMINAL DISTENSION [None]
  - THROAT IRRITATION [None]
